FAERS Safety Report 6657568-4 (Version None)
Quarter: 2010Q1

REPORT INFORMATION
  Report Type: 
  Country: None (occurrence: None)
  Receive Date: 20100326
  Receipt Date: 20100317
  Transmission Date: 20100710
  Serious: Yes (Life-Threatening, Hospitalization)
  Sender: FDA-Public Use
  Company Number: HA10-025-AE

PATIENT
  Age: 72 Year
  Sex: Male
  Weight: 72.5755 kg

DRUGS (3)
  1. SMZ / TMP TABLETS, USP 800 MG / 160 MG (AMNEAL) [Suspect]
     Indication: BACTERIAL INFECTION
     Dosage: 1 TABLET, BID, ORAL
     Route: 048
     Dates: start: 20100201, end: 20100203
  2. OMEPRAZOLE [Concomitant]
  3. FENOFIBRATE [Concomitant]

REACTIONS (5)
  - ASTHENIA [None]
  - CEREBROVASCULAR ACCIDENT [None]
  - FALL [None]
  - INSOMNIA [None]
  - MUSCULOSKELETAL DISORDER [None]
